FAERS Safety Report 17287365 (Version 2)
Quarter: 2020Q1

REPORT INFORMATION
  Report Type: Spontaneous
  Country: FI (occurrence: FI)
  Receive Date: 20200120
  Receipt Date: 20200124
  Transmission Date: 20200409
  Serious: Yes (Death)
  Sender: FDA-Public Use
  Company Number: FI-TEVA-2020-FI-1169811

PATIENT
  Sex: Male

DRUGS (3)
  1. PREDNISOLON [Suspect]
     Active Substance: PREDNISOLONE
     Route: 065
  2. MORPHINE [Concomitant]
     Active Substance: MORPHINE
  3. OXANEST [Concomitant]
     Active Substance: OXYCODONE HYDROCHLORIDE
     Route: 042

REACTIONS (3)
  - Cardiac dysfunction [Fatal]
  - Posture abnormal [Fatal]
  - Muscle atrophy [Fatal]
